FAERS Safety Report 13698949 (Version 1)
Quarter: 2017Q2

REPORT INFORMATION
  Report Type: Spontaneous
  Country: US (occurrence: US)
  Receive Date: 20170628
  Receipt Date: 20170628
  Transmission Date: 20170830
  Serious: Yes (Hospitalization)
  Sender: FDA-Public Use
  Company Number: US-CELGENEUS-USA-20170608826

PATIENT
  Age: 89 Year
  Sex: Female

DRUGS (12)
  1. FT-2102 [Suspect]
     Active Substance: INVESTIGATIONAL PRODUCT
     Indication: PRODUCT USED FOR UNKNOWN INDICATION
     Dosage: 150 MILLIGRAM
     Route: 048
     Dates: start: 20170417
  2. FT-2102 [Suspect]
     Active Substance: INVESTIGATIONAL PRODUCT
     Dosage: 150 MILLIGRAM
     Route: 048
     Dates: start: 20170520
  3. SENNA [Concomitant]
     Active Substance: SENNA LEAF\SENNOSIDES\SENNOSIDES A AND B
     Indication: CONSTIPATION
     Route: 065
  4. VIDAZA [Suspect]
     Active Substance: AZACITIDINE
     Indication: PRODUCT USED FOR UNKNOWN INDICATION
     Dosage: 75 MILLIGRAM/SQ. METER
     Route: 065
     Dates: start: 20170417
  5. MIRALAX [Concomitant]
     Active Substance: POLYETHYLENE GLYCOL 3350
     Indication: CONSTIPATION
     Route: 065
  6. TRAMADOL. [Concomitant]
     Active Substance: TRAMADOL
     Indication: SCIATICA
     Route: 065
     Dates: start: 20170428, end: 20170508
  7. OXYCODONE [Concomitant]
     Active Substance: OXYCODONE
     Indication: SCIATICA
     Route: 065
     Dates: start: 20170519, end: 20170521
  8. GABAPENTIN. [Concomitant]
     Active Substance: GABAPENTIN
     Indication: SCIATICA
     Route: 065
  9. LASIX [Concomitant]
     Active Substance: FUROSEMIDE
     Indication: POLYURIA
     Route: 065
  10. VIDAZA [Suspect]
     Active Substance: AZACITIDINE
     Dosage: 150 MILLIGRAM/SQ. METER
     Route: 065
     Dates: start: 20170520
  11. ONDANSETRON [Concomitant]
     Active Substance: ONDANSETRON
     Indication: PREMEDICATION
     Route: 065
     Dates: start: 20170515, end: 20170517
  12. COLACE [Concomitant]
     Active Substance: DOCUSATE SODIUM
     Indication: CONSTIPATION
     Route: 065

REACTIONS (1)
  - Nausea [Recovered/Resolved]

NARRATIVE: CASE EVENT DATE: 20170520
